FAERS Safety Report 8445203-4 (Version None)
Quarter: 2012Q2

REPORT INFORMATION
  Report Type: 
  Country: None (occurrence: None)
  Receive Date: 20120618
  Receipt Date: 20120608
  Transmission Date: 20120825
  Serious: Yes (Hospitalization, Other)
  Sender: FDA-Public Use
  Company Number: BE-ROCHE-772761

PATIENT
  Sex: Female
  Weight: 60.4 kg

DRUGS (7)
  1. MEDROL [Concomitant]
     Indication: ANAEMIA
     Dosage: DOSE: 64 MG - 4 MG BUILD OFF SCHEDULE. FREQUENCY: QD
     Route: 048
     Dates: start: 20110429, end: 20110616
  2. ACETAMINOPHEN [Concomitant]
     Indication: PAIN
     Route: 048
  3. COPEGUS [Suspect]
     Dosage: REDUCED DOSE.
     Route: 048
     Dates: start: 20110103, end: 20110224
  4. PANTOPRAZOLE [Concomitant]
     Indication: PROPHYLAXIS AGAINST GASTROINTESTINAL ULCER
     Route: 048
  5. PEGASYS [Suspect]
     Indication: HEPATITIS C
     Dosage: DRUG: PEGASYS, DISCONTINUED
     Route: 058
     Dates: start: 20100303, end: 20110419
  6. COPEGUS [Suspect]
     Indication: HEPATITIS C
     Route: 048
  7. BISOPROLOL FUMARATE [Concomitant]
     Indication: HYPERTENSION
     Route: 048

REACTIONS (1)
  - PANCYTOPENIA [None]
